FAERS Safety Report 24401996 (Version 1)
Quarter: 2024Q4

REPORT INFORMATION
  Report Type: Spontaneous
  Country: US (occurrence: US)
  Receive Date: 20241007
  Receipt Date: 20241007
  Transmission Date: 20250114
  Serious: Yes (Hospitalization, Other)
  Sender: AMNEAL
  Company Number: US-AMNEAL PHARMACEUTICALS-2024-AMRX-03581

PATIENT
  Age: 66 Year
  Sex: Male

DRUGS (2)
  1. MINOCYCLINE HYDROCHLORIDE [Suspect]
     Active Substance: MINOCYCLINE HYDROCHLORIDE
     Indication: Osteomyelitis bacterial
     Dosage: 6-WEEK
     Route: 048
  2. AMPICILLIN AND SULBACTAM [Concomitant]
     Active Substance: AMPICILLIN SODIUM\SULBACTAM SODIUM
     Indication: Osteomyelitis bacterial
     Dosage: UNK
     Route: 042

REACTIONS (1)
  - Eosinophilic pneumonia acute [Recovered/Resolved]
